FAERS Safety Report 4499227-2 (Version None)
Quarter: 2004Q4

REPORT INFORMATION
  Report Type: 
  Country: None (occurrence: None)
  Receive Date: 20041111
  Receipt Date: 20041102
  Transmission Date: 20050328
  Serious: Yes (Other)
  Sender: FDA-Public Use
  Company Number: JP-GLAXOSMITHKLINE-B0351020A

PATIENT
  Age: 34 Year
  Sex: Female

DRUGS (3)
  1. PAXIL [Suspect]
     Indication: DEPRESSION
     Dosage: 20MG TWICE PER DAY
     Route: 048
     Dates: start: 20040401, end: 20041001
  2. LEXOTAN [Concomitant]
     Dosage: 4MG PER DAY
     Route: 048
  3. NAUZELIN [Concomitant]
     Dosage: 20MG PER DAY

REACTIONS (2)
  - OEDEMA [None]
  - PLEURAL EFFUSION [None]
